FAERS Safety Report 15525818 (Version 1)
Quarter: 2018Q4

REPORT INFORMATION
  Report Type: Spontaneous
  Country: FR (occurrence: FR)
  Receive Date: 20181019
  Receipt Date: 20181019
  Transmission Date: 20190205
  Serious: Yes (Hospitalization)
  Sender: FDA-Public Use
  Company Number: FR-ASCEND THERAPEUTICS-2056505

PATIENT
  Age: 53 Year
  Sex: Female

DRUGS (2)
  1. ESTROGEL [Suspect]
     Active Substance: ESTRADIOL
     Indication: POLYCYSTIC OVARIES
     Dates: start: 1982, end: 2010
  2. ANDROCUR (CYPROTERONE ACETATE) [Suspect]
     Active Substance: CYPROTERONE ACETATE
     Route: 048
     Dates: start: 1982, end: 201012

REACTIONS (4)
  - Loss of libido [Recovered/Resolved]
  - Diarrhoea [Recovered/Resolved]
  - Vomiting [Recovered/Resolved]
  - Meningioma [Not Recovered/Not Resolved]
